FAERS Safety Report 16809426 (Version 1)
Quarter: 2019Q3

REPORT INFORMATION
  Report Type: Spontaneous
  Country: FR (occurrence: FR)
  Receive Date: 20190916
  Receipt Date: 20190916
  Transmission Date: 20191005
  Serious: Yes (Hospitalization)
  Sender: FDA-Public Use
  Company Number: PHHY2019FR209997

PATIENT
  Age: 90 Year
  Sex: Female

DRUGS (7)
  1. LEVOTHYROXINE SODIQUE [Suspect]
     Active Substance: LEVOTHYROXINE SODIUM
     Indication: PRODUCT ADMINISTRATION ERROR
     Dosage: 75 UG, UNK
     Route: 048
  2. CARBIDOPA. [Suspect]
     Active Substance: CARBIDOPA
     Indication: PRODUCT ADMINISTRATION ERROR
     Dosage: 200 MG, UNK
     Route: 048
  3. AMLODIPINE [Suspect]
     Active Substance: AMLODIPINE BESYLATE
     Indication: PRODUCT ADMINISTRATION ERROR
     Dosage: 10 MG, UNK
     Route: 048
  4. ENTACAPONE. [Suspect]
     Active Substance: ENTACAPONE
     Indication: PRODUCT ADMINISTRATION ERROR
     Dosage: 200 MG, UNK
     Route: 048
  5. PERINDOPRIL [Suspect]
     Active Substance: PERINDOPRIL
     Indication: PRODUCT ADMINISTRATION ERROR
     Dosage: 5 MG, UNK
     Route: 048
  6. LEVODOPA [Suspect]
     Active Substance: LEVODOPA
     Indication: PRODUCT ADMINISTRATION ERROR
     Dosage: 50 MG, UNK
     Route: 048
  7. CLOZAPINE. [Suspect]
     Active Substance: CLOZAPINE
     Indication: PRODUCT ADMINISTRATION ERROR
     Dosage: 150 MG, UNK
     Route: 048

REACTIONS (5)
  - Vomiting [Recovered/Resolved]
  - Ileus [Recovered/Resolved]
  - Product administration error [Recovered/Resolved]
  - Depressed level of consciousness [Recovered/Resolved]
  - Coma [Recovered/Resolved]

NARRATIVE: CASE EVENT DATE: 20190710
